FAERS Safety Report 9002277 (Version 1)
Quarter: 2013Q1

REPORT INFORMATION
  Report Type: Spontaneous
  Country: US (occurrence: US)
  Receive Date: 20130107
  Receipt Date: 20130107
  Transmission Date: 20140127
  Serious: Yes (Other)
  Sender: FDA-Public Use
  Company Number: US-TEVA-378814USA

PATIENT
  Sex: Female

DRUGS (1)
  1. FENTORA [Suspect]

REACTIONS (2)
  - Multiple fractures [Not Recovered/Not Resolved]
  - Herpes zoster [Not Recovered/Not Resolved]
